FAERS Safety Report 7287651-4 (Version None)
Quarter: 2011Q1

REPORT INFORMATION
  Report Type: 
  Country: None (occurrence: None)
  Receive Date: 20110211
  Receipt Date: 20110131
  Transmission Date: 20110831
  Serious: Yes (Hospitalization)
  Sender: FDA-Public Use
  Company Number: JP-SANOFI-AVENTIS-2011SA007840

PATIENT
  Age: 68 Year

DRUGS (3)
  1. MYSLEE [Suspect]
     Route: 048
     Dates: start: 20110127, end: 20110128
  2. FLUMAZENIL [Concomitant]
  3. MYSLEE [Suspect]
     Route: 048
     Dates: start: 20110127, end: 20110128

REACTIONS (3)
  - HYPONATRAEMIA [None]
  - INAPPROPRIATE ANTIDIURETIC HORMONE SECRETION [None]
  - OVERDOSE [None]
